FAERS Safety Report 8168546-0 (Version None)
Quarter: 2012Q1

REPORT INFORMATION
  Report Type: 
  Country: None (occurrence: None)
  Receive Date: 20120227
  Receipt Date: 20120227
  Transmission Date: 20120608
  Serious: Yes (Other)
  Sender: FDA-Public Use
  Company Number: None

PATIENT
  Age: 7 Year
  Sex: Male
  Weight: 36.287 kg

DRUGS (1)
  1. SINGULAIR [Suspect]
     Indication: MULTIPLE ALLERGIES
     Dosage: 5MG
     Route: 048
     Dates: start: 20111115, end: 20120222

REACTIONS (5)
  - DECREASED INTEREST [None]
  - NERVOUSNESS [None]
  - CONFUSIONAL STATE [None]
  - ANXIETY [None]
  - DECREASED APPETITE [None]
